FAERS Safety Report 5182046-1 (Version None)
Quarter: 2006Q4

REPORT INFORMATION
  Report Type: 
  Country: None (occurrence: None)
  Receive Date: 20061220
  Receipt Date: 20060428
  Transmission Date: 20070319
  Serious: No
  Sender: FDA-Public Use
  Company Number: US-GLAXOSMITHKLINE-A0603793A

PATIENT
  Age: 59 Year
  Sex: Female

DRUGS (2)
  1. COMMIT [Suspect]
     Route: 048
     Dates: start: 20060104
  2. PLAVIX [Concomitant]

REACTIONS (1)
  - INTENTIONAL DRUG MISUSE [None]
